FAERS Safety Report 21748333 (Version 1)
Quarter: 2022Q4

REPORT INFORMATION
  Report Type: Spontaneous
  Country: US (occurrence: None)
  Receive Date: 20221217
  Receipt Date: 20221217
  Transmission Date: 20230112
  Serious: No
  Sender: FDA-Public Use
  Company Number: None

PATIENT
  Age: 59 Year
  Sex: Female
  Weight: 103.5 kg

DRUGS (9)
  1. GADOLINIUM [Suspect]
     Active Substance: GADOLINIUM
     Indication: Contrast media deposition
     Route: 042
  2. PERCOCET [Concomitant]
     Active Substance: ACETAMINOPHEN\OXYCODONE HYDROCHLORIDE
  3. OMEPRAZOLE [Concomitant]
     Active Substance: OMEPRAZOLE
  4. Sucralfate 1gm [Concomitant]
  5. Albuteral inhaler [Concomitant]
  6. TYLENOL EXTRA STRENGTH [Concomitant]
     Active Substance: ACETAMINOPHEN
  7. IRON [Concomitant]
     Active Substance: IRON
  8. VITAMINS [Concomitant]
     Active Substance: VITAMINS
  9. allergy meds like Claritin when needed [Concomitant]

REACTIONS (11)
  - Fatigue [None]
  - Arthralgia [None]
  - Myalgia [None]
  - Arthralgia [None]
  - Pain [None]
  - Bone pain [None]
  - Bedridden [None]
  - Headache [None]
  - Arthralgia [None]
  - Condition aggravated [None]
  - Contrast media reaction [None]

NARRATIVE: CASE EVENT DATE: 20221216
